FAERS Safety Report 5032119-9 (Version None)
Quarter: 2006Q2

REPORT INFORMATION
  Report Type: 
  Country: None (occurrence: None)
  Receive Date: 20060619
  Receipt Date: 20060609
  Transmission Date: 20061013
  Serious: Yes (Other)
  Sender: FDA-Public Use
  Company Number: 163-20785-06060007

PATIENT
  Age: 45 Year
  Sex: Female

DRUGS (1)
  1. THALOMID [Suspect]
     Indication: MULTIPLE MYELOMA
     Dosage: 100 - 200 MG DAILY ORAL
     Route: 048
     Dates: start: 20051215, end: 20060601

REACTIONS (2)
  - BLOOD CREATININE INCREASED [None]
  - BLOOD HUMAN CHORIONIC GONADOTROPIN INCREASED [None]
